FAERS Safety Report 4892128-7 (Version None)
Quarter: 2006Q1

REPORT INFORMATION
  Report Type: 
  Country: None (occurrence: None)
  Receive Date: 20060126
  Receipt Date: 20060117
  Transmission Date: 20060701
  Serious: Yes (Life-Threatening, Hospitalization)
  Sender: FDA-Public Use
  Company Number: GB-JNJFOC-20060103594

PATIENT
  Age: 16 Year
  Sex: Female
  Weight: 73.7 kg

DRUGS (5)
  1. CILEST [Suspect]
     Indication: MENORRHAGIA
     Dosage: 250MCG/35MCG
     Route: 048
  2. SERETIDE [Concomitant]
     Route: 055
  3. SERETIDE [Concomitant]
     Indication: ASTHMA
     Route: 055
  4. SALBUTAMOL [Concomitant]
     Indication: ASTHMA
     Route: 055
  5. THEOPHYLLINE [Concomitant]
     Indication: ASTHMA
     Route: 048

REACTIONS (1)
  - ASTHMA [None]
